FAERS Safety Report 5632852-1 (Version None)
Quarter: 2008Q1

REPORT INFORMATION
  Report Type: 
  Country: None (occurrence: None)
  Receive Date: 20080221
  Receipt Date: 20080212
  Transmission Date: 20080703
  Serious: Yes (Death, Life-Threatening, Other)
  Sender: FDA-Public Use
  Company Number: GB-JNJFOC-20080107269

PATIENT
  Sex: Female
  Weight: 49 kg

DRUGS (11)
  1. REMICADE [Suspect]
     Indication: RHEUMATOID ARTHRITIS
     Route: 042
  2. PREDNISOLONE [Concomitant]
  3. AMIODIPINE [Concomitant]
  4. ATENOLOL [Concomitant]
  5. BENDROFLUAZIDE [Concomitant]
  6. CALCIUM [Concomitant]
  7. CIMETIDINE [Concomitant]
  8. CO-CODAMOL [Concomitant]
  9. FOSAMAX [Concomitant]
  10. SENNA [Concomitant]
  11. VITAMIN D [Concomitant]

REACTIONS (1)
  - BRONCHOPNEUMONIA [None]
